FAERS Safety Report 18522594 (Version 4)
Quarter: 2020Q4

REPORT INFORMATION
  Report Type: Spontaneous
  Country: IT (occurrence: IT)
  Receive Date: 20201119
  Receipt Date: 20201208
  Transmission Date: 20210114
  Serious: Yes (Other)
  Sender: FDA-Public Use
  Company Number: IT-MYLANLABS-2020M1094883

PATIENT
  Age: 76 Year
  Sex: Female

DRUGS (16)
  1. TRASTUZUMAB. [Suspect]
     Active Substance: TRASTUZUMAB
     Dosage: 2 MILLIGRAM/KILOGRAM
     Route: 065
     Dates: start: 2016
  2. CAPECITABINE. [Suspect]
     Active Substance: CAPECITABINE
     Indication: HER2 POSITIVE BREAST CANCER
     Dosage: UNK
     Route: 048
     Dates: start: 201603, end: 201608
  3. TRASTUZUMAB EMTANSINE [Suspect]
     Active Substance: ADO-TRASTUZUMAB EMTANSINE
     Indication: HER2 POSITIVE BREAST CANCER
     Dosage: UNK
     Route: 065
  4. PACLITAXEL. [Suspect]
     Active Substance: PACLITAXEL
     Indication: HER2 POSITIVE BREAST CANCER
     Dosage: UNK
     Route: 065
  5. VITAMIN D                          /00107901/ [Concomitant]
     Active Substance: ERGOCALCIFEROL
     Indication: SUPPLEMENTATION THERAPY
     Dosage: UNK
  6. TRASTUZUMAB. [Suspect]
     Active Substance: TRASTUZUMAB
     Dosage: UNK
     Route: 065
     Dates: start: 201411, end: 201602
  7. TRASTUZUMAB. [Suspect]
     Active Substance: TRASTUZUMAB
     Dosage: UNK
     Route: 065
     Dates: start: 2012
  8. LAPATINIB [Suspect]
     Active Substance: LAPATINIB
     Indication: HER2 POSITIVE BREAST CANCER
     Dosage: UNK
     Route: 048
     Dates: start: 201603, end: 201608
  9. TRASTUZUMAB. [Suspect]
     Active Substance: TRASTUZUMAB
     Indication: HER2 POSITIVE BREAST CANCER
     Dosage: 2 MILLIGRAM/KILOGRAM
     Route: 065
     Dates: start: 201305
  10. VINORELBINE [Suspect]
     Active Substance: VINORELBINE TARTRATE
     Indication: HER2 POSITIVE BREAST CANCER
     Dosage: UNK UNK, QW
     Route: 065
     Dates: start: 201305
  11. DENOSUMAB [Concomitant]
     Active Substance: DENOSUMAB
     Indication: OSTEOPATHIC TREATMENT
     Dosage: UNK UNK, MONTHLY
  12. CALCIUM [Concomitant]
     Active Substance: CALCIUM
     Indication: SUPPLEMENTATION THERAPY
     Dosage: UNK
  13. DOCETAXEL. [Suspect]
     Active Substance: DOCETAXEL
     Indication: HER2 POSITIVE BREAST CANCER
     Dosage: UNK
     Route: 065
     Dates: start: 200612, end: 200703
  14. EPIRUBICIN [Suspect]
     Active Substance: EPIRUBICIN
     Indication: HER2 POSITIVE BREAST CANCER
     Dosage: UNK
     Route: 065
     Dates: start: 200612, end: 200703
  15. PACLITAXEL. [Suspect]
     Active Substance: PACLITAXEL
     Dosage: 100 MILLIGRAM/SQ. METER, QW (ADMINISTERED FOR 3 CONSECUTIVE WEEKS FOLLOWED BY A WEEK OFF )
     Dates: start: 2016
  16. LETROZOLE. [Suspect]
     Active Substance: LETROZOLE
     Indication: HER2 POSITIVE BREAST CANCER
     Dosage: UNK
     Route: 065

REACTIONS (8)
  - Pruritus [Recovered/Resolved]
  - Anaemia [Unknown]
  - Asthenia [Unknown]
  - Alopecia [Unknown]
  - Neurotoxicity [Unknown]
  - Leukopenia [Unknown]
  - Pain [Unknown]
  - Pain of skin [Recovered/Resolved]

NARRATIVE: CASE EVENT DATE: 2016
